FAERS Safety Report 23013574 (Version 1)
Quarter: 2023Q4

REPORT INFORMATION
  Report Type: Spontaneous
  Country: US (occurrence: US)
  Receive Date: 20231001
  Receipt Date: 20231001
  Transmission Date: 20240109
  Serious: No
  Sender: FDA-Public Use
  Company Number: US-SA-SAC20230928000308

PATIENT
  Sex: Female

DRUGS (5)
  1. DUPIXENT [Suspect]
     Active Substance: DUPILUMAB
     Indication: Dermatitis atopic
     Dosage: 300 MG, QOW
     Route: 058
     Dates: start: 20210820
  2. ALBUTEROL SULFATE [Concomitant]
     Active Substance: ALBUTEROL SULFATE
     Dosage: UNK
  3. DESONIDE [Concomitant]
     Active Substance: DESONIDE
  4. EPIPEN [Concomitant]
     Active Substance: EPINEPHRINE
  5. DOXYCYCLINE [Concomitant]
     Active Substance: DOXYCYCLINE

REACTIONS (4)
  - Injection site pain [Not Recovered/Not Resolved]
  - Eczema [Not Recovered/Not Resolved]
  - Rash [Not Recovered/Not Resolved]
  - Discomfort [Not Recovered/Not Resolved]
